FAERS Safety Report 9728350 (Version 1)
Quarter: 2013Q4

REPORT INFORMATION
  Report Type: Spontaneous
  Country: US (occurrence: None)
  Receive Date: 20131203
  Receipt Date: 20131203
  Transmission Date: 20140711
  Serious: Yes (Other)
  Sender: FDA-Public Use
  Company Number: None

PATIENT
  Sex: 0

DRUGS (3)
  1. HALDOL 5 MG [Suspect]
     Indication: ANXIETY
     Route: 048
  2. HALDOL 5 MG [Suspect]
     Indication: DISTURBANCE IN ATTENTION
     Route: 048
  3. CONGENTIN .5MG [Concomitant]

REACTIONS (4)
  - Hypertension [None]
  - Dysphagia [None]
  - Tremor [None]
  - Mental impairment [None]
